FAERS Safety Report 8539270-7 (Version None)
Quarter: 2012Q3

REPORT INFORMATION
  Report Type: 
  Country: None (occurrence: None)
  Receive Date: 20120726
  Receipt Date: 20120719
  Transmission Date: 20120928
  Serious: Yes (Hospitalization)
  Sender: FDA-Public Use
  Company Number: JP-PFIZER INC-2012175313

PATIENT
  Age: 77 Year
  Sex: Male

DRUGS (1)
  1. LYRICA [Suspect]
     Dosage: 450 MG, 1X/DAY
     Route: 048

REACTIONS (2)
  - PNEUMONIA ASPIRATION [None]
  - RESPIRATORY FAILURE [None]
